FAERS Safety Report 5034097-5 (Version None)
Quarter: 2006Q2

REPORT INFORMATION
  Report Type: 
  Country: None (occurrence: None)
  Receive Date: 20060626
  Receipt Date: 20051108
  Transmission Date: 20061013
  Serious: Yes (Disabling, Other)
  Sender: FDA-Public Use
  Company Number: 2005UW16982

PATIENT
  Age: 65 Year
  Sex: Male
  Weight: 84.1 kg

DRUGS (5)
  1. SEROQUEL [Suspect]
     Indication: BIPOLAR DISORDER
     Route: 048
  2. SEROQUEL [Suspect]
     Route: 048
  3. LAMICTAL [Concomitant]
     Indication: BIPOLAR DISORDER
  4. EFFEXOR [Concomitant]
     Indication: BIPOLAR DISORDER
  5. HALDOL [Concomitant]

REACTIONS (6)
  - FALL [None]
  - INFECTION [None]
  - INJURY [None]
  - LACERATION [None]
  - LIMB INJURY [None]
  - ORTHOSTATIC HYPOTENSION [None]
